FAERS Safety Report 8920252 (Version 1)
Quarter: 2012Q4

REPORT INFORMATION
  Report Type: 
  Country: IL (occurrence: JO)
  Receive Date: 20121122
  Receipt Date: 20121122
  Transmission Date: 20130627
  Serious: Yes (Death)
  Sender: FDA-Public Use
  Company Number: IL-ROCHE-1154410

PATIENT
  Age: 64 Year
  Sex: Male

DRUGS (1)
  1. ZELBORAF [Suspect]
     Indication: MALIGNANT MELANOMA
     Route: 065

REACTIONS (5)
  - Pyrexia [Unknown]
  - Asthenia [Unknown]
  - Feeling abnormal [Unknown]
  - Dyspnoea [Fatal]
  - Vomiting [Fatal]
